FAERS Safety Report 16863198 (Version 1)
Quarter: 2019Q3

REPORT INFORMATION
  Report Type: Spontaneous
  Country: US (occurrence: US)
  Receive Date: 20190927
  Receipt Date: 20190927
  Transmission Date: 20191005
  Serious: No
  Sender: FDA-Public Use
  Company Number: US-TEVA-2019-US-1113802

PATIENT
  Age: 62 Year
  Sex: Female

DRUGS (1)
  1. ACETAMINOPHEN W/BUTALBITAL W/CAFFEINE [Suspect]
     Active Substance: ACETAMINOPHEN\BUTALBITAL\CAFFEINE
     Dosage: DOSE STRENGTH:  50/325/40MG
     Route: 065
     Dates: start: 1989

REACTIONS (1)
  - Constipation [Unknown]

NARRATIVE: CASE EVENT DATE: 2014
